FAERS Safety Report 6156070-6 (Version None)
Quarter: 2009Q2

REPORT INFORMATION
  Report Type: 
  Country: None (occurrence: None)
  Receive Date: 20090415
  Receipt Date: 20090406
  Transmission Date: 20091009
  Serious: Yes (Other)
  Sender: FDA-Public Use
  Company Number: DE-PFIZER INC-2008091670

PATIENT

DRUGS (2)
  1. SUTENT [Suspect]
     Indication: RENAL CELL CARCINOMA
     Dosage: 50 MG, DAILY
     Route: 048
     Dates: start: 20080409
  2. CLINDAMYCIN HYDROCHLORIDE [Interacting]
     Indication: SCAR
     Route: 048
     Dates: start: 20080101

REACTIONS (14)
  - ABDOMINAL RIGIDITY [None]
  - DERMATITIS PSORIASIFORM [None]
  - DRUG INTERACTION [None]
  - DYSGEUSIA [None]
  - EPISTAXIS [None]
  - FLATULENCE [None]
  - HAIR DISORDER [None]
  - HYPERTENSION [None]
  - LEUKOPENIA [None]
  - PALMAR-PLANTAR ERYTHRODYSAESTHESIA SYNDROME [None]
  - SKIN DISORDER [None]
  - SKIN INFECTION [None]
  - STOMATITIS [None]
  - THROMBOCYTOPENIA [None]
